FAERS Safety Report 21647225 (Version 1)
Quarter: 2022Q4

REPORT INFORMATION
  Report Type: Spontaneous
  Country: AU (occurrence: AU)
  Receive Date: 20221127
  Receipt Date: 20221127
  Transmission Date: 20230113
  Serious: Yes (Hospitalization)
  Sender: FDA-Public Use
  Company Number: AU-STRIDES ARCOLAB LIMITED-2022SP015733

PATIENT
  Age: 67 Year
  Sex: Male

DRUGS (2)
  1. PREDNISOLONE [Suspect]
     Active Substance: PREDNISOLONE
     Indication: Prophylaxis against transplant rejection
     Dosage: UNK
     Route: 065
  2. PREDNISOLONE [Suspect]
     Active Substance: PREDNISOLONE
     Dosage: 20 MILLIGRAM PER DAY (INITIAL DOSAGE NOT STATED)
     Route: 065

REACTIONS (6)
  - Acute kidney injury [Recovered/Resolved]
  - Symptom masked [Recovered/Resolved]
  - Adrenal insufficiency [Recovered/Resolved]
  - Hypotension [Unknown]
  - Diarrhoea [Recovered/Resolved]
  - Transplant dysfunction [Unknown]
